FAERS Safety Report 5936231-9 (Version None)
Quarter: 2008Q4

REPORT INFORMATION
  Report Type: 
  Country: None (occurrence: None)
  Receive Date: 20081030
  Receipt Date: 20080324
  Transmission Date: 20090506
  Serious: No
  Sender: FDA-Public Use
  Company Number: A0699767A

PATIENT
  Age: 54 Year
  Sex: Female

DRUGS (11)
  1. SEREVENT [Suspect]
     Indication: ASTHMA
     Dosage: 2PUFF PER DAY
     Route: 055
     Dates: start: 20071130
  2. NITROSTAT [Concomitant]
  3. KLONOPIN [Concomitant]
  4. HALDOL [Concomitant]
  5. NASACORT [Concomitant]
  6. PROVENTIL-HFA [Concomitant]
  7. CHANTIX [Concomitant]
  8. ZYRTEC [Concomitant]
  9. MOTRIN [Concomitant]
  10. RESTORIL [Concomitant]
  11. NEFAZODONE HCL [Concomitant]

REACTIONS (2)
  - DRUG INEFFECTIVE [None]
  - PRODUCT QUALITY ISSUE [None]
